FAERS Safety Report 5736336-1 (Version None)
Quarter: 2008Q2

REPORT INFORMATION
  Report Type: 
  Country: None (occurrence: None)
  Receive Date: 20080513
  Receipt Date: 20080506
  Transmission Date: 20081010
  Serious: Yes (Hospitalization)
  Sender: FDA-Public Use
  Company Number: US-ELI_LILLY_AND_COMPANY-US200805001547

PATIENT
  Sex: Female
  Weight: 72.562 kg

DRUGS (5)
  1. BYETTA [Suspect]
     Indication: WEIGHT DECREASED
     Dosage: 5 UG, 2/D
     Route: 058
     Dates: start: 20070601, end: 20070101
  2. BYETTA [Suspect]
     Dosage: 10 UG, 2/D
     Route: 058
     Dates: start: 20070101, end: 20080201
  3. BYETTA [Suspect]
     Dosage: 10 UG, 2/D
     Route: 058
     Dates: start: 20080201, end: 20080401
  4. BYETTA [Suspect]
     Dosage: 5 UG, 2/D
     Route: 058
     Dates: start: 20080401, end: 20080501
  5. AMBIEN [Concomitant]
     Indication: INSOMNIA
     Dosage: 10 MG, DAILY (1/D)

REACTIONS (12)
  - DECREASED APPETITE [None]
  - DEHYDRATION [None]
  - DEVICE LEAKAGE [None]
  - DIARRHOEA [None]
  - DYSPNOEA [None]
  - EAR INFECTION [None]
  - INFLUENZA LIKE ILLNESS [None]
  - NAUSEA [None]
  - PHARMACEUTICAL PRODUCT COMPLAINT [None]
  - PNEUMONIA [None]
  - VOMITING [None]
  - WEIGHT DECREASED [None]
